FAERS Safety Report 23376987 (Version 1)
Quarter: 2024Q1

REPORT INFORMATION
  Report Type: Spontaneous
  Country: US (occurrence: US)
  Receive Date: 20240108
  Receipt Date: 20240108
  Transmission Date: 20240409
  Serious: Yes (Other)
  Sender: FDA-Public Use
  Company Number: US-AMGEN-USASP2024001125

PATIENT
  Age: 59 Year
  Sex: Male

DRUGS (2)
  1. TAVNEOS [Suspect]
     Active Substance: AVACOPAN
     Indication: Granulomatosis with polyangiitis
     Dosage: 30 MILLIGRAM, BID (TAKE 3 CAPSULES (30 MG) BY MOUTH TWICE DAILY WITH FOOD)
     Route: 048
     Dates: start: 2023
  2. TAVNEOS [Suspect]
     Active Substance: AVACOPAN
     Indication: Vasculitis

REACTIONS (5)
  - Renal impairment [Unknown]
  - Weight increased [Unknown]
  - Sinus disorder [Unknown]
  - Swelling face [Unknown]
  - Fatigue [Unknown]
